FAERS Safety Report 23291550 (Version 13)
Quarter: 2025Q2

REPORT INFORMATION
  Report Type: Report from Study
  Country: CO (occurrence: CO)
  Receive Date: 20231213
  Receipt Date: 20250626
  Transmission Date: 20250717
  Serious: Yes (Hospitalization, Other)
  Sender: TAKEDA
  Company Number: CO-TAKEDA-2023TUS119709

PATIENT
  Age: 60 Year
  Sex: Male
  Weight: 52 kg

DRUGS (2)
  1. VEDOLIZUMAB [Suspect]
     Active Substance: VEDOLIZUMAB
     Indication: Colitis ulcerative
  2. VEDOLIZUMAB [Suspect]
     Active Substance: VEDOLIZUMAB
     Dosage: 300 MILLIGRAM, Q4WEEKS

REACTIONS (17)
  - Cataract [Unknown]
  - Haemorrhoids [Unknown]
  - Haematochezia [Recovered/Resolved]
  - Frequent bowel movements [Not Recovered/Not Resolved]
  - Malaise [Recovering/Resolving]
  - Abdominal pain [Not Recovered/Not Resolved]
  - Muscular weakness [Recovering/Resolving]
  - Depressed mood [Unknown]
  - Tooth discolouration [Unknown]
  - Weight decreased [Unknown]
  - Proctalgia [Not Recovered/Not Resolved]
  - Treatment noncompliance [Unknown]
  - Product availability issue [Unknown]
  - Drug ineffective [Unknown]
  - Product prescribing error [Unknown]
  - Medication error [Recovered/Resolved]
  - Asthenia [Not Recovered/Not Resolved]

NARRATIVE: CASE EVENT DATE: 20231202
